FAERS Safety Report 13844425 (Version 2)
Quarter: 2018Q3

REPORT INFORMATION
  Report Type: Report from Study
  Country: CL (occurrence: CL)
  Receive Date: 20170808
  Receipt Date: 20180910
  Transmission Date: 20181010
  Serious: Yes (Death, Hospitalization, Other)
  Sender: FDA-Public Use
  Company Number: CL-UCBSA-2017030301

PATIENT
  Age: 80 Year
  Sex: Female

DRUGS (9)
  1. ROTIGOTINE [Suspect]
     Active Substance: ROTIGOTINE
     Indication: PARKINSON^S DISEASE
     Dosage: 4 MG DAILY
     Route: 062
     Dates: start: 20151217, end: 20151230
  2. ROTIGOTINE [Suspect]
     Active Substance: ROTIGOTINE
     Dosage: 4 MG, ONCE DAILY (QD)
     Route: 062
     Dates: start: 201704, end: 20180821
  3. LEVODOPA W/BENSERAZIDE [Concomitant]
     Active Substance: BENSERAZIDE\LEVODOPA
     Indication: PARKINSON^S DISEASE
     Dosage: UNK, 2X/DAY (BID)
     Route: 048
     Dates: start: 201704
  4. ACETYLSALICYLIC ACID [Concomitant]
     Active Substance: ASPIRIN
     Indication: PARKINSON^S DISEASE
     Dosage: 100 MG, UNK
     Route: 048
  5. ROTIGOTINE [Suspect]
     Active Substance: ROTIGOTINE
     Dosage: 6 MG DAILY
     Route: 062
     Dates: start: 20151231, end: 20160128
  6. METFORMIN [Concomitant]
     Active Substance: METFORMIN HYDROCHLORIDE
     Indication: TYPE 2 DIABETES MELLITUS
     Dosage: UNK
     Route: 048
  7. ROTIGOTINE [Suspect]
     Active Substance: ROTIGOTINE
     Dosage: 8 MG DAILY
     Route: 062
     Dates: start: 20160129, end: 201704
  8. AMANTADINE. [Concomitant]
     Active Substance: AMANTADINE HYDROCHLORIDE
     Indication: PARKINSON^S DISEASE
     Dosage: UNK
     Route: 048
     Dates: end: 201704
  9. ACETAMINOPHEN. [Concomitant]
     Active Substance: ACETAMINOPHEN
     Indication: PRODUCT USED FOR UNKNOWN INDICATION
     Dosage: 500 MG DAILY
     Route: 048

REACTIONS (11)
  - Hypoglycaemia [Fatal]
  - Decreased appetite [Recovered/Resolved]
  - Asthenia [Recovering/Resolving]
  - General physical health deterioration [Fatal]
  - Cardio-respiratory arrest [Fatal]
  - Tongue disorder [Not Recovered/Not Resolved]
  - Fatigue [Fatal]
  - Dysphagia [Fatal]
  - Urinary tract infection [Fatal]
  - Presyncope [Fatal]
  - Muscle rigidity [Fatal]

NARRATIVE: CASE EVENT DATE: 201704
